FAERS Safety Report 4976071-0 (Version None)
Quarter: 2006Q2

REPORT INFORMATION
  Report Type: 
  Country: None (occurrence: None)
  Receive Date: 20060412
  Receipt Date: 20060403
  Transmission Date: 20061013
  Serious: Yes (Hospitalization)
  Sender: FDA-Public Use
  Company Number: GXKR2006DE01734

PATIENT
  Age: 85 Year
  Sex: Female
  Weight: 77 kg

DRUGS (7)
  1. MONO-EMBOLEX 8000 IE [Suspect]
     Indication: THROMBOSIS
     Dosage: 8000 IU, BID, SUBCUTANEOUS
     Route: 058
     Dates: start: 20060220, end: 20060228
  2. ACETYLSALICYLIC ACID SRT [Suspect]
     Dosage: 1 DF, QD
     Dates: end: 20060221
  3. AMLOCARD  (AMLODIPINE BESILATE) [Concomitant]
  4. COAPROVEL             (HYDROCHLOROTHIAZIDE, IRBESARTAN) [Concomitant]
  5. PENTAERYTHIRITOL TETRANITRATE TAB [Concomitant]
  6. TORACARD               (TORASEMIDE) [Concomitant]
  7. BISOPROLOL FUMARATE [Concomitant]

REACTIONS (2)
  - COMPARTMENT SYNDROME [None]
  - HAEMATOMA [None]
